FAERS Safety Report 8414778 (Version 3)
Quarter: 2013Q1

REPORT INFORMATION
  Report Type: Spontaneous
  Country: US (occurrence: US)
  Receive Date: 20120218
  Receipt Date: 20130119
  Transmission Date: 20140127
  Serious: Yes (Hospitalization)
  Sender: FDA-Public Use
  Company Number: US-ALLERGAN-1106984US

PATIENT
  Age: 62 None
  Sex: Female

DRUGS (7)
  1. BOTOX? [Suspect]
     Indication: TORTICOLLIS
     Dosage: 313 UNITS, SINGLE
     Route: 030
     Dates: start: 20090513, end: 20090513
  2. BOTOX? [Suspect]
     Indication: MUSCLE TIGHTNESS
     Dosage: 398 UNK, UNK
     Route: 030
     Dates: start: 20090212, end: 20090212
  3. BOTOX? [Suspect]
     Indication: MUSCLE SPASTICITY
     Dosage: 280 UNK, SINGLE
     Dates: start: 20081022, end: 20081022
  4. BOTOX? [Suspect]
     Dosage: 195 UNK, UNK
     Dates: start: 20080710, end: 20080710
  5. BOTOX? [Suspect]
     Dosage: 150 UNK, UNK
     Dates: start: 20080317, end: 20080317
  6. BOTOX? [Suspect]
     Dosage: 150 UNK, UNK
     Dates: start: 20071219, end: 20071219
  7. BOTOX? [Suspect]
     Dosage: 70 UNK, UNK
     Dates: start: 20070926, end: 20070926

REACTIONS (3)
  - Dysphagia [Recovered/Resolved]
  - Speech disorder [Recovering/Resolving]
  - Asthenia [Not Recovered/Not Resolved]
